FAERS Safety Report 21555184 (Version 2)
Quarter: 2022Q4

REPORT INFORMATION
  Report Type: Spontaneous
  Country: US (occurrence: US)
  Receive Date: 20221104
  Receipt Date: 20221107
  Transmission Date: 20230113
  Serious: Yes (Life-Threatening, Hospitalization, Disabling)
  Sender: FDA-Public Use
  Company Number: US-PFIZER INC-8-99022-001T

PATIENT
  Age: 30 Year
  Sex: Female
  Weight: 54.4 kg

DRUGS (10)
  1. KETOROLAC TROMETHAMINE [Suspect]
     Active Substance: KETOROLAC TROMETHAMINE
     Indication: Ill-defined disorder
     Dosage: UNK
     Dates: start: 19981201, end: 19981201
  2. EPINEPHRINE [Suspect]
     Active Substance: EPINEPHRINE
     Indication: Laryngospasm
     Dosage: 0.3 CC (SINGLE DOSE)
     Route: 058
     Dates: start: 19981201, end: 19981201
  3. EPINEPHRINE [Suspect]
     Active Substance: EPINEPHRINE
     Indication: Hypersensitivity
     Dosage: 0.3 ML UNIT DOSE: 000000.3 OR RANGE (LOW TO HI): NULL TO NULL MG FREQUENCY: 001 EVERY 01 NO DATA
     Route: 058
     Dates: start: 19981201, end: 19981201
  4. PROMETHAZINE HYDROCHLORIDE [Suspect]
     Active Substance: PROMETHAZINE HYDROCHLORIDE
     Indication: Ill-defined disorder
     Dosage: UNK
     Dates: start: 19981201, end: 19981201
  5. SOLU-MEDROL [Suspect]
     Active Substance: METHYLPREDNISOLONE SODIUM SUCCINATE
     Indication: Hypersensitivity
     Dosage: 125 MG, IV PUSH
     Route: 042
     Dates: start: 19981201, end: 19981201
  6. SOLU-MEDROL [Suspect]
     Active Substance: METHYLPREDNISOLONE SODIUM SUCCINATE
     Dosage: 125 MG UNIT DOSE: 00000125 OR RANGE (LOW TO HI): NULL TO NULL MG FREQUENCY: 001 EVERY 01 NO DATA
     Route: 042
     Dates: start: 19981201, end: 19981201
  7. FAMOTIDINE [Suspect]
     Active Substance: FAMOTIDINE
     Indication: Hypersensitivity
     Dosage: 20 MG, IV PUSH
     Route: 042
     Dates: start: 19981201, end: 19981201
  8. ALBUTEROL SULFATE [Suspect]
     Active Substance: ALBUTEROL SULFATE
     Dosage: 2.5 MG VIA NEBULIZER
     Route: 055
     Dates: start: 19981201, end: 19981201
  9. BENADRYL [Suspect]
     Active Substance: DIPHENHYDRAMINE HYDROCHLORIDE
     Dosage: 50 MG, IV PUSH
     Route: 042
     Dates: start: 19981201, end: 19981201
  10. MEXILETINE [Concomitant]
     Active Substance: MEXILETINE
     Indication: Complex regional pain syndrome
     Dosage: UNK

REACTIONS (7)
  - Cerebral haemorrhage [Unknown]
  - Chest discomfort [Unknown]
  - Haemorrhage intracranial [Unknown]
  - Headache [Unknown]
  - Nausea [Unknown]
  - Ventricular extrasystoles [Unknown]
  - Vomiting [Unknown]

NARRATIVE: CASE EVENT DATE: 19981201
